FAERS Safety Report 16586389 (Version 1)
Quarter: 2019Q3

REPORT INFORMATION
  Report Type: Spontaneous
  Country: US (occurrence: US)
  Receive Date: 20190717
  Receipt Date: 20190717
  Transmission Date: 20191004
  Serious: Yes (Hospitalization, Other)
  Sender: FDA-Public Use
  Company Number: US-UCBSA-2019024300

PATIENT
  Age: 65 Year
  Sex: Male
  Weight: 106 kg

DRUGS (2)
  1. CIMZIA [Suspect]
     Active Substance: CERTOLIZUMAB PEGOL
     Indication: PSORIASIS
     Dosage: 400 MILLIGRAM, EV 2 WEEKS(QOW)
     Route: 058
     Dates: start: 20190316, end: 20190511
  2. CIMZIA [Suspect]
     Active Substance: CERTOLIZUMAB PEGOL
     Indication: PSORIATIC ARTHROPATHY

REACTIONS (4)
  - Off label use [Unknown]
  - Hypertension [Recovered/Resolved]
  - Palpitations [Recovered/Resolved]
  - Transient global amnesia [Recovering/Resolving]

NARRATIVE: CASE EVENT DATE: 20190316
